FAERS Safety Report 17141237 (Version 2)
Quarter: 2019Q4

REPORT INFORMATION
  Report Type: Report from Study
  Country: None (occurrence: CH)
  Receive Date: 20191211
  Receipt Date: 20191212
  Transmission Date: 20200122
  Serious: Yes (Death)
  Sender: FDA-Public Use
  Company Number: CH-ABBVIE-19K-151-3189732-00

PATIENT
  Age: 72 Year
  Sex: Male

DRUGS (3)
  1. DUODOPA [Suspect]
     Active Substance: CARBIDOPA\LEVODOPA
     Indication: PARKINSON^S DISEASE
     Route: 050
     Dates: start: 20160215, end: 20180228
  2. DUODOPA [Suspect]
     Active Substance: CARBIDOPA\LEVODOPA
     Dosage: MORN DOSE:7.0ML,CONTI RATEDAY:5.2ML/H,CONTI RATENIGHT:4.6ML/H,EXT DOSE:3.5ML,2CASSETTE/DAY
     Route: 050
     Dates: start: 20181226
  3. DUODOPA [Suspect]
     Active Substance: CARBIDOPA\LEVODOPA
     Dosage: MORN DOSE:7.0 ML,CONT RATEDAY:5.1ML/H,CONT RATENIGHT:4.4ML/H,EXT DOSE: 2.0 ML, 24H THERAPY
     Route: 050
     Dates: start: 20180228, end: 20181226

REACTIONS (1)
  - Death [Fatal]

NARRATIVE: CASE EVENT DATE: 20191209
